FAERS Safety Report 7127506-9 (Version None)
Quarter: 2010Q4

REPORT INFORMATION
  Report Type: 
  Country: None (occurrence: None)
  Receive Date: 20101129
  Receipt Date: 20101118
  Transmission Date: 20110411
  Serious: Yes (Hospitalization)
  Sender: FDA-Public Use
  Company Number: JP-PFIZER INC-2010152510

PATIENT
  Age: 80 Year
  Sex: Female

DRUGS (7)
  1. LYRICA [Suspect]
     Indication: POST HERPETIC NEURALGIA
     Dosage: 225 MG/DAY
     Route: 048
     Dates: start: 20100827
  2. SERTRALINE HYDROCHLORIDE [Concomitant]
     Indication: DEPRESSION
     Dosage: UNK
     Route: 048
  3. SOLANAX [Concomitant]
     Indication: PSYCHOSOMATIC DISEASE
     Dosage: UNK
     Route: 048
  4. SELENICA-R [Concomitant]
     Indication: EPILEPSY
     Dosage: UNK
     Route: 048
  5. LIDOCAINE [Concomitant]
     Dosage: UNK
  6. CEROCRAL [Concomitant]
     Indication: CEREBRAL INFARCTION
     Dosage: UNK
     Route: 048
  7. CYANOCOBALAMIN [Concomitant]
     Indication: NEUROPATHY PERIPHERAL
     Dosage: UNK
     Route: 048

REACTIONS (1)
  - INTERSTITIAL LUNG DISEASE [None]
